FAERS Safety Report 8272581 (Version 2)
Quarter: 2013Q2

REPORT INFORMATION
  Report Type: Spontaneous
  Country: US (occurrence: None)
  Receive Date: 20111121
  Receipt Date: 20120501
  Transmission Date: 20140414
  Serious: Yes (Other)
  Sender: FDA-Public Use
  Company Number: 2011029460

PATIENT
  Age: 60 Year
  Sex: Female
  Weight: 95.26 kg

DRUGS (23)
  1. BERINERT [Suspect]
     Indication: HEREDITARY ANGIOEDEMA
     Dosage: (20 ML, 500 UNIT/10ML VIAL; 1000 UNITS; 4 ML/MIN. PRN INTRAVENOUS (NOT OTHERWISE SPECIFIED)
     Route: 042
     Dates: start: 20110728, end: 20110728
  2. WELLBUTRIN [Concomitant]
  3. OXYCONTIN [Concomitant]
  4. VFEND [Concomitant]
  5. DIFLUCAN [Concomitant]
  6. ROBAXIN [Concomitant]
  7. CLONAZEPAM [Concomitant]
  8. BUDESONIDE [Concomitant]
  9. PRAVASTATIN [Concomitant]
  10. PROMETHAZINE [Concomitant]
  11. LEXAPRO [Concomitant]
  12. ESTRADIOL [Concomitant]
  13. GUAIFENESIN [Concomitant]
  14. DICLOFENAC SODIUM [Concomitant]
  15. LEVOTHYROXINE SODIUM [Concomitant]
  16. GENTAMICIN SULFATE [Concomitant]
  17. NYSTATIN [Concomitant]
  18. PERCOCET [Concomitant]
  19. ANABOLIC STEROID (ANABOLIC STEROID) [Concomitant]
  20. VERAMYST (FLUTICASONE) [Concomitant]
  21. SODIUM CHLORIDE [Concomitant]
  22. DILTIAZEM [Concomitant]
  23. RELION VENTOLIN (SALBUTAMOL) [Concomitant]

REACTIONS (7)
  - Gait disturbance [None]
  - Dizziness [None]
  - Pain in extremity [None]
  - Fatigue [None]
  - Asthenia [None]
  - RASH PRURITIC [None]
  - Speech disorder [None]
